FAERS Safety Report 18729199 (Version 1)
Quarter: 2021Q1

REPORT INFORMATION
  Report Type: Spontaneous
  Country: ES (occurrence: ES)
  Receive Date: 20210112
  Receipt Date: 20210112
  Transmission Date: 20210419
  Serious: Yes (Other)
  Sender: FDA-Public Use
  Company Number: ES-PBT-000057

PATIENT
  Age: 71 Year

DRUGS (1)
  1. TACROLIMUS. [Suspect]
     Active Substance: TACROLIMUS
     Indication: PROPHYLAXIS AGAINST TRANSPLANT REJECTION
     Route: 065

REACTIONS (4)
  - COVID-19 [Recovered/Resolved]
  - Condition aggravated [Unknown]
  - Lung consolidation [Unknown]
  - Pneumonia klebsiella [Recovered/Resolved]
